FAERS Safety Report 4892209-8 (Version None)
Quarter: 2006Q1

REPORT INFORMATION
  Report Type: 
  Country: None (occurrence: None)
  Receive Date: 20060125
  Receipt Date: 20060125
  Transmission Date: 20060701
  Serious: Yes (Hospitalization)
  Sender: FDA-Public Use
  Company Number: None

PATIENT
  Sex: Male

DRUGS (1)
  1. DEPAKOTE [Suspect]
     Indication: EPILEPSY
     Dosage: 750MG, AM, ORAL; 500MG, PM, ORAL
     Route: 048

REACTIONS (6)
  - CONTUSION [None]
  - CONVULSION [None]
  - DRUG DOSE OMISSION [None]
  - EYE OEDEMA [None]
  - FALL [None]
  - TREATMENT NONCOMPLIANCE [None]
